FAERS Safety Report 24595960 (Version 12)
Quarter: 2024Q4

REPORT INFORMATION
  Report Type: Spontaneous
  Country: US (occurrence: US)
  Receive Date: 20241109
  Receipt Date: 20241230
  Transmission Date: 20250115
  Serious: Yes (Other)
  Sender: ROCHE
  Company Number: US-ROCHE-10000123422

PATIENT
  Age: 82 Year
  Sex: Female

DRUGS (2)
  1. VABYSMO [Suspect]
     Active Substance: FARICIMAB-SVOA
     Indication: Neovascular age-related macular degeneration
     Dosage: ONE DOSE EVERY 6-8 WEEKS (LEFT EYE), GIVEN BY THE DOCTORS OFFICE?STRENGTH: 6 MG/0.05 ML
     Route: 050
     Dates: start: 20241017
  2. VABYSMO [Suspect]
     Active Substance: FARICIMAB-SVOA
     Indication: Choroidal neovascularisation

REACTIONS (5)
  - Blindness unilateral [Not Recovered/Not Resolved]
  - Endophthalmitis [Unknown]
  - Suspected transmission of an infectious agent via product [Unknown]
  - Visual impairment [Not Recovered/Not Resolved]
  - Off label use [Unknown]

NARRATIVE: CASE EVENT DATE: 20241018
